FAERS Safety Report 10770549 (Version 3)
Quarter: 2015Q3

REPORT INFORMATION
  Report Type: Report from Study
  Country: US (occurrence: US)
  Receive Date: 20150206
  Receipt Date: 20150819
  Transmission Date: 20151125
  Serious: No
  Sender: FDA-Public Use
  Company Number: US-GILEAD-2015-0135870

PATIENT
  Age: 71 Year
  Sex: Female

DRUGS (1)
  1. AMBRISENTAN [Suspect]
     Active Substance: AMBRISENTAN
     Indication: PULMONARY ARTERIAL HYPERTENSION
     Dosage: 5 MG, QD
     Route: 065
     Dates: start: 20130319

REACTIONS (8)
  - Dizziness [Unknown]
  - Dehydration [Unknown]
  - Vertigo [Unknown]
  - Disorientation [Unknown]
  - Abdominal pain [Recovering/Resolving]
  - Malaise [Unknown]
  - Haemoglobin decreased [Unknown]
  - Gait disturbance [Unknown]
